FAERS Safety Report 5408787-6 (Version None)
Quarter: 2007Q3

REPORT INFORMATION
  Report Type: 
  Country: None (occurrence: None)
  Receive Date: 20070713
  Receipt Date: 20070208
  Transmission Date: 20080115
  Serious: Yes (Other)
  Sender: FDA-Public Use
  Company Number: US-JNJFOC-20060604806

PATIENT
  Age: 40 Year
  Sex: Female
  Weight: 115.6672 kg

DRUGS (14)
  1. ORTHO EVRA [Suspect]
     Indication: DRUG USE FOR UNKNOWN INDICATION
     Dosage: TRANSDERMAL
     Route: 062
     Dates: start: 20040301, end: 20040624
  2. DICYCLOMIN                (DICYCLOVERINE HYDROCHLORIDE) [Concomitant]
  3. IBUPROFEN [Concomitant]
  4. LISINOPRIL [Concomitant]
  5. ALBUTEROL             (SALBUMATOL) [Concomitant]
  6. RHINOCORT [Concomitant]
  7. ATROVENT [Concomitant]
  8. FURSOEMIDE            (FURSOEMIDE) [Concomitant]
  9. KLOR-CON [Concomitant]
  10. MECLIZINE [Concomitant]
  11. TRAZODONE HCL [Concomitant]
  12. DEPAKOTE [Concomitant]
  13. BUPROPION HCL [Concomitant]
  14. CELEXA [Concomitant]

REACTIONS (2)
  - DEEP VEIN THROMBOSIS [None]
  - PULMONARY EMBOLISM [None]
